FAERS Safety Report 5090795-9 (Version None)
Quarter: 2006Q3

REPORT INFORMATION
  Report Type: 
  Country: None (occurrence: None)
  Receive Date: 20060823
  Receipt Date: 20060807
  Transmission Date: 20061208
  Serious: Yes (Other)
  Sender: FDA-Public Use
  Company Number: 8018364

PATIENT
  Age: 51 Year
  Sex: Male

DRUGS (5)
  1. KEPPRA [Suspect]
     Indication: EPILEPSY
     Dosage: 500 MG /D PO
     Route: 048
     Dates: start: 20060310, end: 20060314
  2. LAMICTAL [Concomitant]
  3. ATACAND /01349502/ [Concomitant]
  4. GLUCOPHAGE /00082701/ [Concomitant]
  5. TROMBYL [Concomitant]

REACTIONS (2)
  - STEVENS-JOHNSON SYNDROME [None]
  - WOUND [None]
